FAERS Safety Report 26078185 (Version 1)
Quarter: 2025Q4

REPORT INFORMATION
  Report Type: Report from Study
  Country: US (occurrence: US)
  Receive Date: 20251122
  Receipt Date: 20251122
  Transmission Date: 20260119
  Serious: Yes (Other)
  Sender: AMGEN
  Company Number: US-AMGEN-USASL2025227615

PATIENT
  Age: 46 Year
  Sex: Female

DRUGS (41)
  1. OTEZLA [Suspect]
     Active Substance: APREMILAST
     Indication: Behcet^s syndrome
     Dosage: UNK UNK, BID
     Route: 048
     Dates: start: 202206
  2. OTEZLA [Suspect]
     Active Substance: APREMILAST
     Dosage: 30 MILLIGRAM, BID
     Route: 048
     Dates: start: 20240827
  3. ENBREL [Suspect]
     Active Substance: ETANERCEPT
     Indication: Product used for unknown indication
     Dosage: UNK
     Route: 065
  4. ACETAMINOPHEN\OXYCODONE HYDROCHLORIDE [Concomitant]
     Active Substance: ACETAMINOPHEN\OXYCODONE HYDROCHLORIDE
     Dosage: UNK UNK, Q2H
  5. BENADRYL [Concomitant]
     Active Substance: DIPHENHYDRAMINE HYDROCHLORIDE
     Dosage: 25 MILLIGRAM, QD (AT BEDTIME)
  6. METHOTREXATE SODIUM [Concomitant]
     Active Substance: METHOTREXATE SODIUM
     Dosage: 2.5 MILLIGRAM, QWK
  7. B12 active [Concomitant]
     Dosage: 1000 MICROGRAM, QD
  8. ERGOCALCIFEROL [Concomitant]
     Active Substance: ERGOCALCIFEROL
     Dosage: 50000 UNIT, QWK
     Route: 048
     Dates: start: 20221017
  9. SIMPONI ARIA [Concomitant]
     Active Substance: GOLIMUMAB
     Dosage: (50/4 MILLIGRAM PER MILLILITRE AND    SOLUTION 2 MG/KG Q 8 WEEKS AFTER LOADING DOSE)
     Route: 040
     Dates: start: 20250529
  10. DOXYCYCLINE [Concomitant]
     Active Substance: DOXYCYCLINE
     Dosage: BID (FOR 10 DAYS)
  11. CLONAZEPAM [Concomitant]
     Active Substance: CLONAZEPAM
     Dosage: 1 MILLIGRAM, QD (AS NEEDED)
  12. COLCHICINE [Concomitant]
     Active Substance: COLCHICINE
     Dosage: 0.6 MILLIGRAM, QD
     Dates: start: 20250414
  13. ZAFIRLUKAST [Concomitant]
     Active Substance: ZAFIRLUKAST
     Dosage: 20 MILLIGRAM, BID
     Dates: start: 20241119
  14. KETOCONAZOLE [Concomitant]
     Active Substance: KETOCONAZOLE
     Dosage: 2 PERCENT, BID (AS NEEDED)
     Route: 061
  15. PATADAY [Concomitant]
     Active Substance: OLOPATADINE HYDROCHLORIDE
     Dosage: 0.1 PERCENT, BID (AS NEEDED IN BOTH EYES)
  16. AMLODIPINE [Concomitant]
     Active Substance: AMLODIPINE BESYLATE
     Dosage: 2.5 MILLIGRAM, QD (AT NIGHT)
  17. FOLIC ACID [Concomitant]
     Active Substance: FOLIC ACID
     Dosage: 1 MILLIGRAM, QD
     Dates: start: 20241217
  18. VITAMIN B1 [Concomitant]
     Active Substance: THIAMINE HYDROCHLORIDE
     Dosage: 100 MILLIGRAM, QD
  19. FUROSEMIDE [Concomitant]
     Active Substance: FUROSEMIDE
     Dosage: 40 MILLIGRAM, QD
  20. PANTOPRAZOLE [Concomitant]
     Active Substance: PANTOPRAZOLE
     Dosage: 40 MILLIGRAM, BID
  21. ATORVASTATIN [Concomitant]
     Active Substance: ATORVASTATIN
     Dosage: 40 MILLIGRAM, QD
  22. KLOR-CON M10 [Concomitant]
     Active Substance: POTASSIUM CHLORIDE
     Dosage: 10 MILLIEQUIVALENT, BID
  23. SAVELLA [Concomitant]
     Active Substance: MILNACIPRAN HYDROCHLORIDE
     Dosage: 100 MILLIGRAM, QD
     Dates: start: 20221017
  24. DICLOFENAC [Concomitant]
     Active Substance: DICLOFENAC
     Dosage: 1 GRAM
     Route: 061
     Dates: start: 20240415
  25. DICLOFENAC SODIUM [Concomitant]
     Active Substance: DICLOFENAC SODIUM
     Dosage: 75 MILLIGRAM, QD (AS NEEDED)
  26. TRAZODONE [Concomitant]
     Active Substance: TRAZODONE HYDROCHLORIDE
     Dosage: 50 MILLIGRAM, QD (AS NEEDED)
  27. MINERALS\VITAMINS [Concomitant]
     Active Substance: MINERALS\VITAMINS
     Dosage: UNK UNK, BID
  28. PROMETHAZINE [Concomitant]
     Active Substance: PROMETHAZINE HYDROCHLORIDE
     Dosage: 25 MILLIGRAM, QD (AS NEEDED)
  29. Ferretts IPS [Concomitant]
     Dosage: 15 MILLILITER, QD
     Dates: start: 20230918
  30. MAGNESIUM [Concomitant]
     Active Substance: MAGNESIUM
     Dosage: 250 MILLIGRAM, QD
  31. INFED [Concomitant]
     Active Substance: IRON DEXTRAN
     Dosage: UNK
     Route: 040
     Dates: start: 20241231
  32. RECLAST [Concomitant]
     Active Substance: ZOLEDRONIC ACID
     Dosage: UNK
     Dates: start: 20240930
  33. NOVAVAX COVID-19 VACCINE, ADJUVANTED [Concomitant]
     Active Substance: NVX-COV2373
     Dosage: UNK
     Dates: start: 20241011
  34. EVUSHELD [Concomitant]
     Active Substance: CILGAVIMAB\TIXAGEVIMAB
     Dosage: UNK
     Dates: start: 20221025
  35. HEPATITIS A VACCINE NOS [Concomitant]
     Active Substance: HEPATITIS A VACCINE, INACTIVATED
     Dosage: UNK
     Dates: start: 20250114
  36. HEPATITIS B VIRUS VACCINE [Concomitant]
     Active Substance: HEPATITIS B VIRUS VACCINE
     Dosage: UNK
     Dates: start: 20250114
  37. INFLUENZA VIRUS VACCINE [Concomitant]
     Active Substance: INFLUENZA VIRUS VACCINE
     Dosage: UNK
     Dates: start: 20241011
  38. MEASLES-MUMPS-RUBELLA VIRUS VACCINE [Concomitant]
     Active Substance: MEASLES-MUMPS-RUBELLA VIRUS VACCINE
     Dosage: UNK
     Dates: start: 20250401
  39. Zoster [Concomitant]
  40. SHINGRIX [Concomitant]
     Active Substance: RECOMBINANT VARICELLA ZOSTER VIRUS (VZV) GLYCOPROTEIN E
  41. PNEUMOCOCCAL VACCINE POLYVALENT [Concomitant]
     Active Substance: PNEUMOCOCCAL VACCINE POLYVALENT
     Dosage: UNK
     Dates: start: 20191021

REACTIONS (102)
  - Skin laceration [Unknown]
  - Transient ischaemic attack [Unknown]
  - Pulmonary fibrosis [Unknown]
  - Aortic arteriosclerosis [Unknown]
  - Gastrointestinal haemorrhage [Unknown]
  - Enteritis infectious [Unknown]
  - Ankle brachial index decreased [Unknown]
  - Wound [Recovered/Resolved]
  - Scoliosis [Unknown]
  - Granuloma [Unknown]
  - Scar [Unknown]
  - Atelectasis [Unknown]
  - Blood glucose abnormal [Unknown]
  - Total complement activity increased [Unknown]
  - Electrophoresis protein [Unknown]
  - Immunoglobulins decreased [Unknown]
  - Alpha 1 globulin increased [Unknown]
  - Leukocytosis [Unknown]
  - Neutrophilia [Unknown]
  - Blood cholesterol abnormal [Unknown]
  - High density lipoprotein abnormal [Unknown]
  - Low density lipoprotein abnormal [Unknown]
  - Catheterisation cardiac [Unknown]
  - Lumbar spinal stenosis [Unknown]
  - Sinus tachycardia [Unknown]
  - Left atrial enlargement [Unknown]
  - Peripheral venous disease [Unknown]
  - Rib fracture [Unknown]
  - Intervertebral disc degeneration [Unknown]
  - Osteoarthritis [Unknown]
  - Intervertebral disc disorder [Unknown]
  - Facet joint syndrome [Unknown]
  - Ligamentum flavum hypertrophy [Unknown]
  - Intervertebral disc protrusion [Unknown]
  - Joint dislocation [Unknown]
  - Spinal osteoarthritis [Unknown]
  - Bladder dilatation [Unknown]
  - Pain in extremity [Unknown]
  - Oedema [Unknown]
  - Spinal laminectomy [Unknown]
  - Soft tissue inflammation [Unknown]
  - Intervertebral disc annular tear [Unknown]
  - Myoclonus [Unknown]
  - Movement disorder [Unknown]
  - Neuropathy peripheral [Unknown]
  - Dysaesthesia [Unknown]
  - Migraine [Recovered/Resolved]
  - Osmotic demyelination syndrome [Unknown]
  - Tooth infection [Unknown]
  - Peripheral sensory neuropathy [Unknown]
  - Cystitis [Unknown]
  - Hydronephrosis [Unknown]
  - Hepatic steatosis [Unknown]
  - Faecaloma [Unknown]
  - Varicose vein [Unknown]
  - Peripheral venous disease [Unknown]
  - Dermal cyst [Unknown]
  - Retinal drusen [Unknown]
  - Maculopathy [Unknown]
  - Dry eye [Unknown]
  - Nervous system disorder [Unknown]
  - Osteopenia [Unknown]
  - Compression fracture [Unknown]
  - Obstructive sleep apnoea syndrome [Unknown]
  - Dyspepsia [Unknown]
  - Dysphagia [Unknown]
  - Balance disorder [Unknown]
  - Headache [Unknown]
  - Fatigue [Unknown]
  - Hyperhidrosis [Unknown]
  - Weight decreased [Unknown]
  - Upper-airway cough syndrome [Unknown]
  - Temporomandibular pain and dysfunction syndrome [Unknown]
  - Dry mouth [Unknown]
  - Stomatitis [Unknown]
  - Oropharyngeal pain [Unknown]
  - Lymphadenopathy [Unknown]
  - Rash [Unknown]
  - Skin lesion [Unknown]
  - Dry skin [Unknown]
  - Skin hypopigmentation [Unknown]
  - Photosensitivity reaction [Unknown]
  - Telangiectasia [Unknown]
  - Alopecia [Unknown]
  - Visual impairment [Unknown]
  - Photophobia [Unknown]
  - Dyspnoea [Unknown]
  - Dyspnoea exertional [Unknown]
  - Palpitations [Unknown]
  - Raynaud^s phenomenon [Unknown]
  - Diarrhoea [Unknown]
  - Nausea [Unknown]
  - Abdominal distension [Unknown]
  - Nocturia [Unknown]
  - Musculoskeletal pain [Unknown]
  - Osteitis [Unknown]
  - Muscle strain [Unknown]
  - Ligament sprain [Unknown]
  - Systemic lupus erythematosus [Unknown]
  - Thyroid disorder [Unknown]
  - Colitis [Unknown]
  - Thromboangiitis obliterans [Unknown]

NARRATIVE: CASE EVENT DATE: 20150611
